FAERS Safety Report 19720460 (Version 1)
Quarter: 2021Q3

REPORT INFORMATION
  Report Type: Spontaneous
  Country: US (occurrence: US)
  Receive Date: 20210818
  Receipt Date: 20210818
  Transmission Date: 20211014
  Serious: Yes (Other)
  Sender: FDA-Public Use
  Company Number: US-AKCEA THERAPEUTICS, INC.-2021IS001490

PATIENT
  Age: 74 Year
  Sex: Female

DRUGS (2)
  1. ISSD (INTEGRATED SYRINGE SAFETY DEVICE) [Suspect]
     Active Substance: DEVICE
  2. TEGSEDI [Suspect]
     Active Substance: INOTERSEN SODIUM
     Indication: HEREDITARY NEUROPATHIC AMYLOIDOSIS
     Route: 058
     Dates: start: 20210603

REACTIONS (10)
  - Bacterial test positive [Not Recovered/Not Resolved]
  - Glomerular filtration rate decreased [Unknown]
  - White blood cells urine positive [Not Recovered/Not Resolved]
  - Platelet count decreased [Unknown]
  - Fungal test positive [Unknown]
  - Glucose urine present [Not Recovered/Not Resolved]
  - Urine leukocyte esterase positive [Not Recovered/Not Resolved]
  - Urinary sediment present [Unknown]
  - Nitrite urine present [Not Recovered/Not Resolved]
  - Blood creatine increased [Not Recovered/Not Resolved]
